FAERS Safety Report 22626638 (Version 1)
Quarter: 2023Q2

REPORT INFORMATION
  Report Type: Report from Study
  Country: PL (occurrence: PL)
  Receive Date: 20230621
  Receipt Date: 20230621
  Transmission Date: 20230721
  Serious: Yes (Death)
  Sender: FDA-Public Use
  Company Number: PL-BAYER-2023A082575

PATIENT
  Age: 86 Year
  Sex: Male

DRUGS (1)
  1. VENTAVIS [Suspect]
     Active Substance: ILOPROST
     Indication: Product used for unknown indication
     Dosage: 1 DF, 6ID
     Route: 055
     Dates: start: 20220113

REACTIONS (2)
  - Death [Fatal]
  - Physical deconditioning [Unknown]
